FAERS Safety Report 7525938-8 (Version None)
Quarter: 2011Q2

REPORT INFORMATION
  Report Type: 
  Country: None (occurrence: None)
  Receive Date: 20110606
  Receipt Date: 20110527
  Transmission Date: 20111010
  Serious: Yes (Death, Other)
  Sender: FDA-Public Use
  Company Number: JP-AMGEN-JPNCT2011028771

PATIENT
  Age: 66 Year
  Sex: Male
  Weight: 72 kg

DRUGS (30)
  1. FLUOROURACIL [Suspect]
     Route: 041
     Dates: start: 20100811, end: 20101130
  2. FLUOROURACIL [Suspect]
     Route: 040
     Dates: start: 20101201, end: 20110215
  3. DECADRON [Concomitant]
     Dosage: UNK
  4. ALDACTONE [Concomitant]
     Dosage: UNK
     Route: 048
  5. OXYCONTIN [Concomitant]
     Dosage: UNK
     Route: 048
  6. IRINOTECAN HCL [Suspect]
     Indication: COLORECTAL CANCER
     Route: 041
     Dates: start: 20101201, end: 20110215
  7. KYTRIL [Concomitant]
     Dosage: UNK
     Route: 042
  8. TANATRIL [Concomitant]
     Dosage: UNK
     Route: 048
  9. MAGNESOL [Concomitant]
     Dosage: UNK
     Route: 042
  10. FENTOS [Concomitant]
     Route: 062
  11. CARVEDILOL [Concomitant]
     Dosage: UNK
     Route: 048
  12. BUFFERIN [Concomitant]
     Dosage: UNK
     Route: 048
  13. PANITUMUMAB [Suspect]
     Indication: COLORECTAL CANCER
     Dosage: 6 MG/KG, Q2WK
     Route: 041
     Dates: start: 20100811, end: 20110413
  14. OXALIPLATIN [Suspect]
     Indication: COLORECTAL CANCER
     Route: 041
     Dates: start: 20100811, end: 20101130
  15. FLUOROURACIL [Suspect]
     Indication: COLORECTAL CANCER
     Route: 040
     Dates: start: 20100811, end: 20101130
  16. LEUCOVORIN CALCIUM [Suspect]
     Indication: COLORECTAL CANCER
     Route: 041
     Dates: start: 20100811, end: 20101130
  17. DIPHENHYDRAMINE HCL [Concomitant]
     Dosage: UNK
     Route: 048
  18. MINOCYCLINE HCL [Concomitant]
     Dosage: UNK
     Route: 048
  19. AMLODIPINE [Concomitant]
     Dosage: UNK
     Route: 048
  20. CORTICOSTEROIDS [Concomitant]
     Indication: PROPHYLAXIS
     Dosage: UNK
     Route: 065
  21. HIRUDOID [Concomitant]
     Dosage: UNK
     Route: 062
  22. DALACIN-T [Concomitant]
     Dosage: UNK
     Route: 062
  23. NAUZELIN [Concomitant]
     Dosage: UNK
     Route: 048
  24. FLUOROURACIL [Suspect]
     Route: 041
     Dates: start: 20101201, end: 20110215
  25. MYSER [Concomitant]
     Dosage: UNK
     Route: 062
  26. PURSENNID [Concomitant]
     Dosage: UNK
     Route: 048
  27. LEUCOVORIN CALCIUM [Suspect]
     Route: 041
     Dates: start: 20101201, end: 20110215
  28. ANTIHISTAMINES [Concomitant]
     Indication: PROPHYLAXIS
     Dosage: UNK
     Route: 065
  29. CHLOR-TRIMETON [Concomitant]
     Dosage: UNK
     Route: 042
  30. LASIX [Concomitant]
     Dosage: UNK
     Route: 048

REACTIONS (9)
  - PARONYCHIA [None]
  - ASCITES [None]
  - OEDEMA PERIPHERAL [None]
  - STOMATITIS [None]
  - HYPOAESTHESIA [None]
  - DERMATITIS ACNEIFORM [None]
  - BLOOD MAGNESIUM DECREASED [None]
  - COLORECTAL CANCER [None]
  - PAIN [None]
